FAERS Safety Report 13134774 (Version 1)
Quarter: 2017Q1

REPORT INFORMATION
  Report Type: Spontaneous
  Country: US (occurrence: US)
  Receive Date: 20170120
  Receipt Date: 20170120
  Transmission Date: 20170428
  Serious: Yes (Death)
  Sender: FDA-Public Use
  Company Number: US-PFIZER INC-2016563685

PATIENT
  Age: 67 Year
  Sex: Male

DRUGS (14)
  1. DIGOXIN. [Concomitant]
     Active Substance: DIGOXIN
     Dosage: 125 UG, DAILY
     Route: 048
  2. METOPROLOL TARTRATE. [Concomitant]
     Active Substance: METOPROLOL TARTRATE
     Dosage: 100 MG, DAILY
     Route: 048
  3. TORISEL [Concomitant]
     Active Substance: TEMSIROLIMUS
     Indication: PLEURAL EFFUSION
  4. INFLUENZA [Concomitant]
     Active Substance: INFLUENZA VIRUS VACCINE
     Indication: IMMUNISATION
     Dosage: UNK UNK, SINGLE
     Dates: start: 20160926, end: 20160926
  5. TORISEL [Concomitant]
     Active Substance: TEMSIROLIMUS
     Indication: CHRONIC KIDNEY DISEASE
  6. FLUVIRINE [Concomitant]
     Indication: PLEURAL EFFUSION
     Dosage: 0.5 ML, SINGLE (CYCLES GIVEN/ PLANNED: 1/)
     Route: 030
     Dates: start: 20160926, end: 20160926
  7. LACTULOSE. [Concomitant]
     Active Substance: LACTULOSE
     Indication: CONSTIPATION
     Dosage: UNK UNK, AS NEEDED [10 GRAM/15 ML; 30 CC (ONE OUNCE) TWICE DAILY AS NEEDED]
     Route: 048
  8. SUTENT [Suspect]
     Active Substance: SUNITINIB MALATE
     Indication: METASTATIC RENAL CELL CARCINOMA
     Dosage: 50 MG, CYCLIC (QD; 2WEEKS ON 1 WEEKS OFF)
     Route: 048
     Dates: start: 20161128
  9. SENNA PLUS [Concomitant]
     Active Substance: DOCUSATE SODIUM\SENNOSIDES\SENNOSIDES A AND B
     Dosage: UNK [SENNOSIDES 8.6 MG/ DOCUSATE SODIUM 50 MG]
  10. TRAMADOL. [Concomitant]
     Active Substance: TRAMADOL
     Dosage: 50 MG, AS NEEDED
  11. TORISEL [Concomitant]
     Active Substance: TEMSIROLIMUS
     Indication: RENAL CANCER
     Dosage: 25 MG, WEEKLY (X 12; CYCLES GIVEN/ PLANNED: 12/12)
     Dates: start: 20160815, end: 20161031
  12. PHOSPHA 250 NEUTRAL [Concomitant]
     Active Substance: POTASSIUM PHOSPHATE, MONOBASIC\SODIUM PHOSPHATE, DIBASIC, ANHYDROUS\SODIUM PHOSPHATE, MONOBASIC, MONOHYDRATE
     Dosage: 250 MG, 4X/DAY
     Route: 048
  13. PROMETHAZINE DM [Concomitant]
     Active Substance: DEXTROMETHORPHAN HYDROBROMIDE\PROMETHAZINE HYDROCHLORIDE
     Dosage: UNK UNK, 4X/DAY [PROMETHAZINE 6.25 MG/DEXTROMETHORPHAN 15 MG)/5 ML]
  14. TAZTIA XT [Concomitant]
     Active Substance: DILTIAZEM HYDROCHLORIDE
     Dosage: 240 MG, DAILY
     Route: 048

REACTIONS (1)
  - Death [Fatal]
